FAERS Safety Report 4408420-6 (Version None)
Quarter: 2004Q3

REPORT INFORMATION
  Report Type: 
  Country: None (occurrence: None)
  Receive Date: 20040722
  Receipt Date: 20040708
  Transmission Date: 20050211
  Serious: Yes (Congenital Anomaly)
  Sender: FDA-Public Use
  Company Number: 2004-BP-05414BP (0)

PATIENT
  Age: 20 Year
  Sex: Female

DRUGS (5)
  1. VIRAMUNE [Suspect]
     Indication: HIV INFECTION
     Dosage: 400 MG, PO
     Route: 048
     Dates: end: 20040113
  2. COMBIVIR [Suspect]
     Indication: HIV INFECTION
     Dosage: 600/300MG, PO
     Route: 048
     Dates: end: 20040113
  3. KALETRA [Suspect]
     Indication: HIV INFECTION
     Dosage: 400/100MG, PO
     Route: 048
     Dates: start: 20040114
  4. DIDANOSINE (DIDANOSINE) [Suspect]
     Indication: HIV INFECTION
     Dosage: 250 MG, PO
     Route: 048
     Dates: start: 20040114
  5. TENOFOVIR (TENOFOVIR) [Suspect]
     Indication: HIV INFECTION
     Dosage: 300 MG, PO
     Route: 048
     Dates: start: 20040114

REACTIONS (2)
  - DRUG EXPOSURE DURING PREGNANCY [None]
  - ULTRASOUND ANTENATAL SCREEN ABNORMAL [None]
